FAERS Safety Report 23766722 (Version 3)
Quarter: 2024Q3

REPORT INFORMATION
  Report Type: Spontaneous
  Country: JP (occurrence: JP)
  Receive Date: 20240422
  Receipt Date: 20240703
  Transmission Date: 20241017
  Serious: Yes (Other)
  Sender: ROCHE
  Company Number: JP-CHUGAI-2024011980

PATIENT
  Age: 54 Year
  Sex: Female

DRUGS (2)
  1. TECENTRIQ [Suspect]
     Active Substance: ATEZOLIZUMAB
     Indication: Triple negative breast cancer
     Route: 065
  2. PACLITAXEL [Concomitant]
     Active Substance: PACLITAXEL
     Indication: Triple negative breast cancer
     Dosage: UNK

REACTIONS (5)
  - Rash [Not Recovered/Not Resolved]
  - Cardiac failure [Unknown]
  - Hyperthyroidism [Unknown]
  - Graves^ disease [Unknown]
  - Flushing [Unknown]
